FAERS Safety Report 4311898-X (Version None)
Quarter: 2004Q1

REPORT INFORMATION
  Report Type: 
  Country: None (occurrence: None)
  Receive Date: 20040303
  Receipt Date: 20040220
  Transmission Date: 20041129
  Serious: Yes (Hospitalization)
  Sender: FDA-Public Use
  Company Number: 2003118605

PATIENT
  Age: 36 Year
  Sex: Female

DRUGS (4)
  1. GABAPENTIN (GABAPENTIN) [Suspect]
     Indication: NEUROPATHIC PAIN
     Dosage: 800 MG (BID), ORAL
     Route: 048
     Dates: start: 20020901, end: 20030601
  2. CARBAMAZEPINE [Concomitant]
  3. ALL OTHER THERAPEUTIC PRODUCTS [Concomitant]
  4. KETOPROFEN [Concomitant]

REACTIONS (7)
  - GENERALISED OEDEMA [None]
  - HEPATITIS [None]
  - HEPATOSPLENOMEGALY [None]
  - INFECTIOUS MONONUCLEOSIS [None]
  - MASS [None]
  - PYREXIA [None]
  - TOXOPLASMOSIS [None]
